FAERS Safety Report 20796053 (Version 5)
Quarter: 2022Q2

REPORT INFORMATION
  Report Type: Spontaneous
  Country: US (occurrence: US)
  Receive Date: 20220506
  Receipt Date: 20220609
  Transmission Date: 20220721
  Serious: No
  Sender: FDA-Public Use
  Company Number: US-PFIZER INC-202101707045

PATIENT
  Age: 39 Year
  Sex: Female
  Weight: 79.83 kg

DRUGS (1)
  1. XELJANZ XR [Suspect]
     Active Substance: TOFACITINIB CITRATE
     Indication: Rheumatoid arthritis
     Dosage: 11 MG (30 TAB BOTTLE)
     Dates: start: 20190101

REACTIONS (3)
  - Product dose omission issue [Unknown]
  - Pain [Unknown]
  - Feeling abnormal [Unknown]
